FAERS Safety Report 24012535 (Version 8)
Quarter: 2025Q2

REPORT INFORMATION
  Report Type: Report from Study
  Country: ZA (occurrence: ZA)
  Receive Date: 20240626
  Receipt Date: 20250404
  Transmission Date: 20250717
  Serious: Yes (Other)
  Sender: CELLTRION
  Company Number: ZA-CELLTRION INC.-2024ZA015205

PATIENT

DRUGS (4)
  1. INFLIXIMAB-DYYB [Suspect]
     Active Substance: INFLIXIMAB-DYYB
     Indication: Crohn^s disease
     Route: 042
     Dates: start: 20240613
  2. INFLIXIMAB-DYYB [Suspect]
     Active Substance: INFLIXIMAB-DYYB
     Route: 042
     Dates: start: 20240808
  3. INFLIXIMAB-DYYB [Suspect]
     Active Substance: INFLIXIMAB-DYYB
     Route: 042
     Dates: start: 20241205
  4. INFLIXIMAB-DYYB [Suspect]
     Active Substance: INFLIXIMAB-DYYB

REACTIONS (24)
  - Crohn^s disease [Unknown]
  - Abdominal pain [Recovering/Resolving]
  - Pain [Recovering/Resolving]
  - Decreased appetite [Recovering/Resolving]
  - Discomfort [Unknown]
  - Fluid retention [Unknown]
  - Weight increased [Unknown]
  - Infusion site coldness [Recovering/Resolving]
  - Increased tendency to bruise [Unknown]
  - Constipation [Recovering/Resolving]
  - Diarrhoea [Recovering/Resolving]
  - Fatigue [Recovering/Resolving]
  - Infusion site erythema [Recovering/Resolving]
  - Infusion site hypoaesthesia [Recovering/Resolving]
  - Infusion site pain [Recovered/Resolved]
  - Infusion site swelling [Recovering/Resolving]
  - Infusion site warmth [Recovering/Resolving]
  - Nausea [Recovering/Resolving]
  - Injection site bruising [Recovered/Resolved]
  - Vomiting [Recovering/Resolving]
  - Arthralgia [Unknown]
  - Injection site pain [Recovered/Resolved]
  - Pain [Unknown]
  - Underdose [Unknown]

NARRATIVE: CASE EVENT DATE: 20240613
